FAERS Safety Report 4817505-1 (Version None)
Quarter: 2005Q4

REPORT INFORMATION
  Report Type: 
  Country: None (occurrence: None)
  Receive Date: 20051101
  Receipt Date: 20051025
  Transmission Date: 20060501
  Serious: Yes (Hospitalization)
  Sender: FDA-Public Use
  Company Number: TR-MERCK-0510USA09319

PATIENT
  Age: 15 Year
  Sex: Male

DRUGS (1)
  1. CUPRIMINE [Suspect]
     Route: 048

REACTIONS (1)
  - GLOMERULONEPHRITIS MEMBRANOPROLIFERATIVE [None]
